FAERS Safety Report 13242514 (Version 1)
Quarter: 2017Q1

REPORT INFORMATION
  Report Type: Spontaneous
  Country: US (occurrence: US)
  Receive Date: 20170216
  Receipt Date: 20170216
  Transmission Date: 20170428
  Serious: Yes (Other)
  Sender: FDA-Public Use
  Company Number: None

PATIENT

DRUGS (1)
  1. DENTI-CARE NEUTRAL GEL NAF 1.1% [Suspect]
     Active Substance: SODIUM FLUORIDE
     Route: 004

REACTIONS (2)
  - Oral discomfort [None]
  - Oral pain [None]

NARRATIVE: CASE EVENT DATE: 20170118
